FAERS Safety Report 8301922-1 (Version None)
Quarter: 2012Q2

REPORT INFORMATION
  Report Type: 
  Country: None (occurrence: None)
  Receive Date: 20120420
  Receipt Date: 20120411
  Transmission Date: 20120825
  Serious: Yes (Hospitalization)
  Sender: FDA-Public Use
  Company Number: CA-ROCHE-1059547

PATIENT
  Sex: Female
  Weight: 53.118 kg

DRUGS (14)
  1. METHOTREXATE [Concomitant]
  2. FOLIC ACID [Concomitant]
  3. DILTIAZEM HCL [Concomitant]
     Indication: BLOOD PRESSURE
  4. DIPHENHYDRAMINE HCL [Concomitant]
     Indication: PREMEDICATION
     Route: 048
     Dates: start: 20110721, end: 20110721
  5. ACETAMINOPHEN [Concomitant]
     Indication: PREMEDICATION
     Route: 048
     Dates: start: 20110721, end: 20110721
  6. PROLIA [Concomitant]
  7. RABEPRAZOLE SODIUM [Concomitant]
  8. ATENOLOL [Concomitant]
  9. PREDNISONE [Concomitant]
  10. IRON [Concomitant]
  11. MAVIK [Concomitant]
  12. METHYLPREDNISOLONE [Concomitant]
     Indication: PREMEDICATION
     Route: 042
     Dates: start: 20110721, end: 20110721
  13. MABTHERA [Suspect]
     Indication: RHEUMATOID ARTHRITIS
     Route: 042
     Dates: start: 20101118
  14. VITAMIN D [Concomitant]

REACTIONS (4)
  - UPPER LIMB FRACTURE [None]
  - FALL [None]
  - LOWER LIMB FRACTURE [None]
  - WRIST FRACTURE [None]
